FAERS Safety Report 7408227-1 (Version None)
Quarter: 2011Q2

REPORT INFORMATION
  Report Type: 
  Country: None (occurrence: None)
  Receive Date: 20110412
  Receipt Date: 20110114
  Transmission Date: 20111010
  Serious: No
  Sender: FDA-Public Use
  Company Number: A0906183A

PATIENT
  Age: 78 Year
  Sex: Male

DRUGS (3)
  1. ATENOLOL [Concomitant]
  2. JALYN [Suspect]
     Indication: BENIGN PROSTATIC HYPERPLASIA
     Dosage: 1CAP PER DAY
     Route: 048
     Dates: start: 20110107, end: 20110114
  3. SIMVASTATIN [Concomitant]

REACTIONS (1)
  - GLOSSODYNIA [None]
